FAERS Safety Report 8204776-7 (Version None)
Quarter: 2012Q1

REPORT INFORMATION
  Report Type: 
  Country: None (occurrence: None)
  Receive Date: 20120313
  Receipt Date: 20120302
  Transmission Date: 20120608
  Serious: Yes (Other)
  Sender: FDA-Public Use
  Company Number: US-JNJFOC-20120303044

PATIENT
  Sex: Male
  Weight: 102.06 kg

DRUGS (6)
  1. FELDENE [Concomitant]
     Indication: SWELLING
     Route: 048
     Dates: start: 19920101
  2. REMICADE [Suspect]
     Indication: PSORIATIC ARTHROPATHY
     Dosage: 3 VIALS
     Route: 042
     Dates: start: 20091001
  3. VALIUM [Concomitant]
     Indication: MUSCLE RELAXANT THERAPY
     Route: 048
     Dates: start: 19970101
  4. TENORETIC 100 [Concomitant]
     Indication: HYPERTENSION
     Route: 048
     Dates: start: 19920101
  5. CAPTOPRIL [Concomitant]
     Indication: HYPERTENSION
     Route: 048
  6. FELDENE [Concomitant]
     Indication: PAIN
     Route: 048
     Dates: start: 19920101

REACTIONS (4)
  - JOINT SWELLING [None]
  - PAIN IN EXTREMITY [None]
  - ARTHRITIS [None]
  - SYNOVIAL CYST [None]
